FAERS Safety Report 8163193-9 (Version None)
Quarter: 2012Q1

REPORT INFORMATION
  Report Type: 
  Country: None (occurrence: None)
  Receive Date: 20120224
  Receipt Date: 20110516
  Transmission Date: 20120608
  Serious: No
  Sender: FDA-Public Use
  Company Number: US-PFIZER INC-K201100627

PATIENT
  Age: 60 Year
  Sex: Female

DRUGS (6)
  1. LIPITOR [Suspect]
     Dosage: UNK
  2. HYDROCHLOROTHIAZIDE [Suspect]
     Dosage: UNK
  3. FENOFIBRATE [Suspect]
     Dosage: UNK
  4. LOSARTAN POTASSIUM [Suspect]
     Dosage: UNK
  5. FLECTOR [Suspect]
     Dosage: UNK
  6. PREMPRO [Suspect]
     Dosage: UNK

REACTIONS (1)
  - PAIN IN EXTREMITY [None]
